FAERS Safety Report 4990842-6 (Version None)
Quarter: 2006Q1

REPORT INFORMATION
  Report Type: 
  Country: None (occurrence: None)
  Receive Date: 20060314
  Receipt Date: 20060210
  Transmission Date: 20060701
  Serious: No
  Sender: FDA-Public Use
  Company Number: 2006-00301

PATIENT
  Age: 62 Year
  Sex: Male

DRUGS (4)
  1. VELCADE [Suspect]
     Indication: MYELOMA RECURRENCE
     Dates: start: 20060207, end: 20060210
  2. KYRTIL (GRANISETRON) [Concomitant]
  3. THALIDOMIDE [Concomitant]
  4. DEXAMETHASONE TAB [Concomitant]

REACTIONS (2)
  - NAUSEA [None]
  - VOMITING [None]
